FAERS Safety Report 6801251-9 (Version None)
Quarter: 2010Q2

REPORT INFORMATION
  Report Type: 
  Country: None (occurrence: None)
  Receive Date: 20100629
  Receipt Date: 20100625
  Transmission Date: 20101027
  Serious: Yes (Hospitalization)
  Sender: FDA-Public Use
  Company Number: FR-WYE-G06323610

PATIENT
  Age: 3 Year
  Sex: Male

DRUGS (3)
  1. IBUPROFEN (ADVIL) [Suspect]
     Indication: OTITIS MEDIA ACUTE
     Dosage: UNKNOWN
     Route: 048
     Dates: start: 20100601, end: 20100601
  2. AUGMENTIN ENFANT [Suspect]
     Indication: OTITIS MEDIA ACUTE
     Dosage: UNKNOWN
     Route: 048
     Dates: start: 20100601, end: 20100601
  3. DOLIPRANE [Suspect]
     Indication: OTITIS MEDIA ACUTE
     Dosage: UNKNOWN
     Route: 048
     Dates: start: 20100601, end: 20100601

REACTIONS (1)
  - MASTOIDITIS [None]
